FAERS Safety Report 6677151-4 (Version None)
Quarter: 2010Q2

REPORT INFORMATION
  Report Type: 
  Country: None (occurrence: None)
  Receive Date: 20100412
  Receipt Date: 20100406
  Transmission Date: 20101027
  Serious: Yes (Death)
  Sender: FDA-Public Use
  Company Number: US-GILEAD-2010-0028279

PATIENT
  Sex: Male

DRUGS (11)
  1. LETAIRIS [Suspect]
     Indication: PULMONARY ARTERIAL HYPERTENSION
     Route: 048
     Dates: start: 20090122
  2. LASIX [Concomitant]
  3. SPIRONOLACTONE [Concomitant]
  4. LORTAB [Concomitant]
  5. GLIPIZIDE [Concomitant]
  6. NEURONTIN [Concomitant]
  7. TEMAZEPAM [Concomitant]
  8. METFORMIN HCL [Concomitant]
  9. METANX [Concomitant]
  10. ALPHA LIPOIC ACID [Concomitant]
  11. MILK THISTLE [Concomitant]

REACTIONS (1)
  - PULMONARY HYPERTENSION [None]
